FAERS Safety Report 24201245 (Version 3)
Quarter: 2024Q3

REPORT INFORMATION
  Report Type: Spontaneous
  Country: ES (occurrence: ES)
  Receive Date: 20240812
  Receipt Date: 20240829
  Transmission Date: 20241016
  Serious: Yes (Other)
  Sender: BAUSCH AND LOMB
  Company Number: None

PATIENT
  Age: 87 Year
  Sex: Male
  Weight: 57 kg

DRUGS (2)
  1. DEXAMETHASONE [Interacting]
     Active Substance: DEXAMETHASONE
     Indication: COVID-19
     Route: 042
     Dates: start: 20240621, end: 20240626
  2. HYDROCORTISONE [Interacting]
     Active Substance: HYDROCORTISONE\HYDROCORTISONE ACETATE
     Indication: COVID-19
     Route: 042
     Dates: start: 20240621, end: 20240621

REACTIONS (3)
  - Type 2 diabetes mellitus [Recovered/Resolved]
  - Hyperglycaemia [Recovered/Resolved]
  - Condition aggravated [Recovered/Resolved]

NARRATIVE: CASE EVENT DATE: 20240621
